FAERS Safety Report 13945570 (Version 2)
Quarter: 2017Q4

REPORT INFORMATION
  Report Type: Spontaneous
  Country: US (occurrence: US)
  Receive Date: 20170907
  Receipt Date: 20171106
  Transmission Date: 20180320
  Serious: No
  Sender: FDA-Public Use
  Company Number: US-PFIZER INC-2017383434

PATIENT
  Age: 66 Year
  Sex: Female
  Weight: 61.22 kg

DRUGS (1)
  1. IBRANCE [Suspect]
     Active Substance: PALBOCICLIB
     Indication: BREAST CANCER METASTATIC
     Dosage: 125 MG, CYCLIC (DAY1-21 Q28 DAYS)
     Route: 048
     Dates: start: 20170809

REACTIONS (1)
  - White blood cell count decreased [Not Recovered/Not Resolved]
